FAERS Safety Report 19072144 (Version 2)
Quarter: 2021Q2

REPORT INFORMATION
  Report Type: Spontaneous
  Country: AT (occurrence: AT)
  Receive Date: 20210330
  Receipt Date: 20210402
  Transmission Date: 20210717
  Serious: Yes (Death, Other)
  Sender: FDA-Public Use
  Company Number: NVSC2021AT071959

PATIENT
  Sex: Female

DRUGS (15)
  1. VIDAZA [Concomitant]
     Active Substance: AZACITIDINE
     Dosage: UNK
     Route: 065
     Dates: start: 20191003
  2. VIDAZA [Concomitant]
     Active Substance: AZACITIDINE
     Dosage: UNK
     Route: 065
     Dates: start: 20191128
  3. VIDAZA [Concomitant]
     Active Substance: AZACITIDINE
     Dosage: UNK
     Route: 065
     Dates: start: 20200102
  4. VIDAZA [Concomitant]
     Active Substance: AZACITIDINE
     Dosage: UNK
     Route: 065
     Dates: start: 20200526
  5. VIDAZA [Concomitant]
     Active Substance: AZACITIDINE
     Dosage: UNK
     Route: 065
     Dates: start: 20200914, end: 2020
  6. VIDAZA [Concomitant]
     Active Substance: AZACITIDINE
     Indication: PRODUCT USED FOR UNKNOWN INDICATION
     Dosage: UNK
     Route: 065
     Dates: start: 20190905
  7. VIDAZA [Concomitant]
     Active Substance: AZACITIDINE
     Dosage: UNK
     Route: 065
     Dates: start: 20191031
  8. RYDAPT [Suspect]
     Active Substance: MIDOSTAURIN
     Dosage: UNK
     Route: 065
     Dates: start: 20200407
  9. RYDAPT [Suspect]
     Active Substance: MIDOSTAURIN
     Dosage: 50 MG, BID
     Route: 065
     Dates: start: 202004, end: 20200615
  10. RYDAPT [Suspect]
     Active Substance: MIDOSTAURIN
     Dosage: 50 MG, BID
     Route: 065
     Dates: end: 20200623
  11. RYDAPT [Suspect]
     Active Substance: MIDOSTAURIN
     Indication: ACUTE MYELOID LEUKAEMIA
     Dosage: 25 MG, BID
     Route: 065
     Dates: start: 20200331, end: 20200615
  12. RYDAPT [Suspect]
     Active Substance: MIDOSTAURIN
     Dosage: UNK
     Route: 065
     Dates: start: 20200505, end: 20200518
  13. RYDAPT [Suspect]
     Active Substance: MIDOSTAURIN
     Dosage: UNK
     Route: 065
     Dates: start: 20200602
  14. VIDAZA [Concomitant]
     Active Substance: AZACITIDINE
     Dosage: UNK
     Route: 065
     Dates: start: 20200331
  15. VIDAZA [Concomitant]
     Active Substance: AZACITIDINE
     Dosage: UNK
     Route: 065
     Dates: start: 20200623

REACTIONS (7)
  - Palpitations [Unknown]
  - Vomiting [Unknown]
  - Malignant neoplasm progression [Fatal]
  - Drug ineffective [Unknown]
  - Nausea [Unknown]
  - Acute myeloid leukaemia [Fatal]
  - Neutropenia [Unknown]
